FAERS Safety Report 7878943-6 (Version None)
Quarter: 2011Q4

REPORT INFORMATION
  Report Type: 
  Country: None (occurrence: None)
  Receive Date: 20111021
  Receipt Date: 20110812
  Transmission Date: 20120403
  Serious: Yes (Hospitalization)
  Sender: FDA-Public Use
  Company Number: ALL1-2011-02733

PATIENT
  Age: 40 Year
  Sex: Male

DRUGS (2)
  1. VYVANSE [Suspect]
     Indication: PRODUCT USED FOR UNKNOWN INDICATION
     Dosage: , 1X/DAY:BID, ORAL
     Route: 048
     Dates: start: 20110601, end: 20110731
  2. PRISTIQ [Concomitant]

REACTIONS (1)
  - GRAND MAL CONVULSION [None]
